FAERS Safety Report 20909934 (Version 2)
Quarter: 2022Q2

REPORT INFORMATION
  Report Type: Spontaneous
  Country: CN (occurrence: CN)
  Receive Date: 20220603
  Receipt Date: 20220613
  Transmission Date: 20220721
  Serious: Yes (Hospitalization, Other)
  Sender: FDA-Public Use
  Company Number: None

PATIENT
  Age: 58 Year
  Sex: Female

DRUGS (10)
  1. PREDNISOLONE [Suspect]
     Active Substance: PREDNISOLONE
     Indication: Lupus nephritis
     Dosage: 40 MILLIGRAM ONCE DAILY (AS IMMUNOMODULATORY THERAPY)
     Route: 065
     Dates: start: 2018
  2. PREDNISOLONE [Suspect]
     Active Substance: PREDNISOLONE
     Indication: Systemic lupus erythematosus
     Dosage: 5 MILLIGRAM ONCE DAILY (IMMUNOMODULATORY THERAPY)
     Route: 065
     Dates: start: 2020, end: 2020
  3. MYCOPHENOLATE MOFETIL [Suspect]
     Active Substance: MYCOPHENOLATE MOFETIL
     Indication: Systemic lupus erythematosus
     Dosage: 0.75 MG, BID (IMMUNOMODULATORY THERAPY)
     Route: 065
  4. CYCLOPHOSPHAMIDE [Suspect]
     Active Substance: CYCLOPHOSPHAMIDE
     Indication: Systemic lupus erythematosus
     Dosage: 0.2 GRAM ONCE DAILY
     Route: 065
     Dates: start: 2017
  5. METHYLPREDNISOLONE [Suspect]
     Active Substance: METHYLPREDNISOLONE
     Indication: Systemic lupus erythematosus
     Dosage: 500 MG PER DAY, PULSE THERAPY
     Route: 065
     Dates: start: 2017, end: 2017
  6. METHYLPREDNISOLONE [Suspect]
     Active Substance: METHYLPREDNISOLONE
     Indication: Lupus nephritis
     Dosage: 40 MG PER DAY
     Route: 065
     Dates: start: 2017, end: 2018
  7. METHYLPREDNISOLONE [Suspect]
     Active Substance: METHYLPREDNISOLONE
     Dosage: 40 MILLIGRAM PER DAY
     Route: 042
  8. HYDROXYCHLOROQUINE [Concomitant]
     Active Substance: HYDROXYCHLOROQUINE
     Indication: Systemic lupus erythematosus
     Dosage: 200 MILLIGRAM, BID (AS IMMUNOMODULATORY THERAPY))
     Route: 065
     Dates: start: 2018
  9. ITRACONAZOLE [Concomitant]
     Active Substance: ITRACONAZOLE
     Indication: Anti-infective therapy
     Dosage: UNK
     Route: 048
     Dates: start: 2018
  10. VORICONAZOLE [Concomitant]
     Active Substance: VORICONAZOLE
     Indication: Anti-infective therapy
     Dosage: UNK
     Route: 065
     Dates: start: 2018

REACTIONS (7)
  - Thrombosis [Recovered/Resolved]
  - Bronchiectasis [Recovered/Resolved]
  - Pneumonia bacterial [Recovered/Resolved]
  - Condition aggravated [Recovered/Resolved]
  - Aspergilloma [Recovered/Resolved]
  - Pneumonia fungal [Recovered/Resolved]
  - Treatment noncompliance [Unknown]

NARRATIVE: CASE EVENT DATE: 20180101
